FAERS Safety Report 4563308-5 (Version None)
Quarter: 2005Q1

REPORT INFORMATION
  Report Type: 
  Country: None (occurrence: None)
  Receive Date: 20050128
  Receipt Date: 20031222
  Transmission Date: 20050727
  Serious: No
  Sender: FDA-Public Use
  Company Number: US-GLAXOSMITHKLINE-A0443915A

PATIENT
  Sex: Female

DRUGS (4)
  1. WELLBUTRIN [Suspect]
     Indication: DEPRESSION
     Route: 048
  2. WELLBUTRIN XL [Suspect]
     Indication: DEPRESSION
     Route: 048
  3. LEXAPRO [Concomitant]
  4. HYDROCHLOROTHIAZIDE [Concomitant]

REACTIONS (4)
  - ANHEDONIA [None]
  - DEPRESSION [None]
  - HYPERSOMNIA [None]
  - OEDEMA [None]
